FAERS Safety Report 17328852 (Version 3)
Quarter: 2020Q1

REPORT INFORMATION
  Report Type: Report from Study
  Country: CO (occurrence: CO)
  Receive Date: 20200127
  Receipt Date: 20200211
  Transmission Date: 20200409
  Serious: Yes (Hospitalization)
  Sender: FDA-Public Use
  Company Number: NVSC2020CO015558

PATIENT
  Age: 52 Year
  Sex: Female
  Weight: 52 kg

DRUGS (5)
  1. REVOLADE [Suspect]
     Active Substance: ELTROMBOPAG
     Dosage: 50 MG, Q12H
     Route: 048
     Dates: start: 201912, end: 20191212
  2. CYCLOSPORINE. [Suspect]
     Active Substance: CYCLOSPORINE
     Indication: APLASTIC ANAEMIA
     Dosage: 100 MG, QD
     Route: 048
     Dates: start: 201911
  3. REVOLADE [Suspect]
     Active Substance: ELTROMBOPAG
     Indication: APLASTIC ANAEMIA
     Dosage: 75 MG, QD (TABLET OF 25 MG)
     Route: 048
     Dates: start: 201911
  4. CYCLOSPORINE. [Suspect]
     Active Substance: CYCLOSPORINE
     Dosage: 200 MG, Q12H
     Route: 048
  5. ACYCLOVIR. [Concomitant]
     Active Substance: ACYCLOVIR
     Indication: PRODUCT USED FOR UNKNOWN INDICATION
     Dosage: 50 MG, Q12H
     Route: 048
     Dates: start: 201911

REACTIONS (6)
  - Vomiting [Recovered/Resolved]
  - Laboratory test abnormal [Unknown]
  - Off label use [Unknown]
  - Psychiatric symptom [Recovered/Resolved]
  - Cold sweat [Recovered/Resolved]
  - Product use in unapproved indication [Unknown]

NARRATIVE: CASE EVENT DATE: 20200204
